FAERS Safety Report 7115302-8 (Version None)
Quarter: 2010Q4

REPORT INFORMATION
  Report Type: 
  Country: None (occurrence: None)
  Receive Date: 20101122
  Receipt Date: 20101112
  Transmission Date: 20110411
  Serious: Yes (Other)
  Sender: FDA-Public Use
  Company Number: US-US-EMD SERONO, INC.-7026502

PATIENT
  Sex: Female

DRUGS (2)
  1. REBIF [Suspect]
     Indication: MULTIPLE SCLEROSIS
     Route: 058
     Dates: start: 20070912
  2. AMPYRA [Concomitant]
     Indication: GAIT DISTURBANCE
     Dates: end: 20100101

REACTIONS (4)
  - ADVERSE DRUG REACTION [None]
  - DEPRESSED MOOD [None]
  - GAIT DISTURBANCE [None]
  - SUICIDAL BEHAVIOUR [None]
